FAERS Safety Report 12805210 (Version 2)
Quarter: 2016Q4

REPORT INFORMATION
  Report Type: Other
  Country: US (occurrence: US)
  Receive Date: 20161004
  Receipt Date: 20161027
  Transmission Date: 20170207
  Serious: Yes (Hospitalization)
  Sender: FDA-Public Use
  Company Number: US-SHIRE-US201613168

PATIENT
  Age: 55 Year
  Sex: Female

DRUGS (1)
  1. GATTEX [Suspect]
     Active Substance: TEDUGLUTIDE\WATER
     Indication: SHORT-BOWEL SYNDROME
     Dosage: UNK, UNKNOWN
     Route: 058
     Dates: start: 20160801, end: 20160905

REACTIONS (9)
  - Oedema [Recovering/Resolving]
  - Fluid overload [Recovering/Resolving]
  - Hypotension [Recovering/Resolving]
  - Lymphadenopathy [Recovering/Resolving]
  - Heart rate decreased [Recovering/Resolving]
  - Swelling [Recovering/Resolving]
  - Lymph node pain [Recovering/Resolving]
  - Gastrointestinal stoma output increased [Unknown]
  - Drug dose omission [Recovered/Resolved]

NARRATIVE: CASE EVENT DATE: 20160905
